FAERS Safety Report 5086042-4 (Version None)
Quarter: 2006Q3

REPORT INFORMATION
  Report Type: 
  Country: None (occurrence: None)
  Receive Date: 20060817
  Receipt Date: 20060804
  Transmission Date: 20061208
  Serious: Yes (Hospitalization)
  Sender: FDA-Public Use
  Company Number: 2006097517

PATIENT
  Age: 69 Year
  Sex: Male

DRUGS (3)
  1. ATARAX [Suspect]
     Indication: PREMEDICATION
     Dosage: 50 MG (50 MG, 1 IN 1 D), ORAL
     Route: 048
     Dates: start: 20060627, end: 20060628
  2. PREDNISOLONE [Suspect]
     Indication: PREMEDICATION
     Dosage: 70 MG (1 D), ORAL
     Route: 048
     Dates: start: 20060627, end: 20060628
  3. DESLORATADINE [Suspect]
     Indication: PREMEDICATION
     Dosage: 1 IN 1 D, ORAL
     Route: 048
     Dates: start: 20060627, end: 20060628

REACTIONS (1)
  - RASH [None]
